FAERS Safety Report 14224089 (Version 1)
Quarter: 2017Q4

REPORT INFORMATION
  Report Type: Spontaneous
  Country: US (occurrence: US)
  Receive Date: 20171125
  Receipt Date: 20171125
  Transmission Date: 20180321
  Serious: Yes (Life-Threatening, Other)
  Sender: FDA-Public Use
  Company Number: None

PATIENT
  Age: 19 Year
  Sex: Male
  Weight: 62.1 kg

DRUGS (1)
  1. GABLOFEN [Suspect]
     Active Substance: BACLOFEN
     Indication: CEREBRAL PALSY
     Dosage: ?          OTHER STRENGTH:MICROGRAMS/ML;QUANTITY:1 PREFILLED SYRINGE;OTHER FREQUENCY:Q 4 - 6 MOS;OTHER ROUTE:INJECTED INTO BACLOFEN PUMP CHAMBER?
     Dates: start: 20171121

REACTIONS (2)
  - Withdrawal syndrome [None]
  - Therapy non-responder [None]

NARRATIVE: CASE EVENT DATE: 20171121
